FAERS Safety Report 18583730 (Version 5)
Quarter: 2023Q2

REPORT INFORMATION
  Report Type: Spontaneous
  Country: US (occurrence: US)
  Receive Date: 20201207
  Receipt Date: 20230501
  Transmission Date: 20230721
  Serious: Yes (Other)
  Sender: FDA-Public Use
  Company Number: US-SPECGX-T202002331

PATIENT
  Sex: Male

DRUGS (2)
  1. FENTANYL CITRATE [Suspect]
     Active Substance: FENTANYL CITRATE
     Indication: Pain
     Dosage: 1200 MICROGRAM, Q6H
     Route: 065
     Dates: end: 202005
  2. FENTANYL CITRATE [Suspect]
     Active Substance: FENTANYL CITRATE
     Dosage: UNK
     Route: 065
     Dates: end: 2023

REACTIONS (5)
  - Paraplegia [Unknown]
  - Spinal cord injury [Unknown]
  - Burning sensation [Unknown]
  - Illness [Unknown]
  - Hypertension [Unknown]
